FAERS Safety Report 16744979 (Version 1)
Quarter: 2019Q3

REPORT INFORMATION
  Report Type: Report from Study
  Country: US (occurrence: US)
  Receive Date: 20190827
  Receipt Date: 20190827
  Transmission Date: 20191005
  Serious: Yes (Other)
  Sender: FDA-Public Use
  Company Number: US-BIOGEN-2019BI00776760

PATIENT
  Sex: Female

DRUGS (1)
  1. AVONEX [Suspect]
     Active Substance: INTERFERON BETA-1A
     Indication: MULTIPLE SCLEROSIS
     Route: 065

REACTIONS (7)
  - Nausea [Not Recovered/Not Resolved]
  - Central nervous system lesion [Unknown]
  - Eye pain [Unknown]
  - Diabetes mellitus [Unknown]
  - Pyrexia [Recovered/Resolved]
  - Multiple sclerosis relapse [Unknown]
  - Aphasia [Unknown]
